FAERS Safety Report 9338383 (Version 1)
Quarter: 2013Q2

REPORT INFORMATION
  Report Type: Spontaneous
  Country: US (occurrence: US)
  Receive Date: 20130610
  Receipt Date: 20130610
  Transmission Date: 20140414
  Serious: Yes (Hospitalization)
  Sender: FDA-Public Use
  Company Number: US-PFIZER INC-2013174291

PATIENT
  Age: 57 Year
  Sex: Male
  Weight: 68.03 kg

DRUGS (3)
  1. GEODON [Suspect]
     Indication: BIPOLAR I DISORDER
     Dosage: 80 MG, 1X/DAY
  2. GEODON [Suspect]
     Indication: HALLUCINATION
  3. LORAZEPAM [Concomitant]
     Dosage: 2 MG, 2X/DAY

REACTIONS (1)
  - Drug ineffective [Recovered/Resolved]
